FAERS Safety Report 6162775-3 (Version None)
Quarter: 2009Q2

REPORT INFORMATION
  Report Type: 
  Country: None (occurrence: None)
  Receive Date: 20090421
  Receipt Date: 20080701
  Transmission Date: 20091009
  Serious: No
  Sender: FDA-Public Use
  Company Number: US-ASTRAZENECA-2008UW13246

PATIENT
  Age: 69 Year
  Sex: Female
  Weight: 99.8 kg

DRUGS (9)
  1. METOPROLOL SUCCINATE [Suspect]
     Route: 048
  2. TOPROL-XL [Concomitant]
     Dosage: 100 MG TABL CUT IN HALF
     Route: 048
  3. PROZAC [Concomitant]
  4. SYNTHROID [Concomitant]
  5. DONNATAL [Concomitant]
  6. LORAZEPAM [Concomitant]
  7. ELAVIL [Concomitant]
  8. ASPIRIN [Concomitant]
  9. VITAMINS [Concomitant]

REACTIONS (4)
  - DIARRHOEA [None]
  - HEADACHE [None]
  - HEART RATE INCREASED [None]
  - PALPITATIONS [None]
